FAERS Safety Report 4392661-0 (Version None)
Quarter: 2004Q3

REPORT INFORMATION
  Report Type: 
  Country: None (occurrence: None)
  Receive Date: 20040708
  Receipt Date: 20040625
  Transmission Date: 20050211
  Serious: Yes (Hospitalization)
  Sender: FDA-Public Use
  Company Number: PHHO2004IT09047

PATIENT
  Age: 78 Year
  Sex: Male

DRUGS (5)
  1. ZOMETA [Suspect]
     Indication: METASTASES TO BONE
     Dosage: 4 MG, QMO
     Route: 042
     Dates: start: 20040224, end: 20040519
  2. CALCIUM [Concomitant]
     Dosage: 500 MG, QD
     Route: 048
  3. VITAMIN D [Concomitant]
     Dosage: 400-500 IU, QD
     Route: 048
  4. SUPREFACT [Concomitant]
     Indication: PROSTATE CANCER
     Dates: start: 19930401
  5. ESTRACYT [Suspect]
     Indication: PROSTATE CANCER
     Route: 048
     Dates: start: 20040531

REACTIONS (3)
  - DISEASE PROGRESSION [None]
  - DYSPNOEA [None]
  - GASTRIC ULCER HAEMORRHAGE [None]
